FAERS Safety Report 7787241-0 (Version None)
Quarter: 2011Q3

REPORT INFORMATION
  Report Type: 
  Country: None (occurrence: None)
  Receive Date: 20110929
  Receipt Date: 20110920
  Transmission Date: 20111222
  Serious: Yes (Other)
  Sender: FDA-Public Use
  Company Number: US-ACTELION-A-US2011-51259

PATIENT

DRUGS (5)
  1. DIURETICS [Concomitant]
  2. TRACLEER [Suspect]
     Indication: PULMONARY ARTERIAL HYPERTENSION
     Dosage: 125 MG, BID
     Route: 048
     Dates: start: 20090701, end: 20110901
  3. TRACLEER [Suspect]
     Dosage: 62.5 MG, BID
     Route: 048
     Dates: start: 20090101
  4. CALCIUM CHANNEL BLOCKERS [Concomitant]
  5. OXYGEN [Concomitant]

REACTIONS (3)
  - RENAL IMPAIRMENT [None]
  - FLUID RETENTION [None]
  - BLOOD CREATININE INCREASED [None]
